FAERS Safety Report 10798686 (Version 2)
Quarter: 2016Q2

REPORT INFORMATION
  Report Type: Report from Study
  Country: BR (occurrence: BR)
  Receive Date: 20150216
  Receipt Date: 20160523
  Transmission Date: 20160815
  Serious: Yes (Hospitalization, Other)
  Sender: FDA-Public Use
  Company Number: BR-ABBVIE-10P-020-0665303-00

PATIENT
  Age: 51 Year
  Sex: Female
  Weight: 59 kg

DRUGS (24)
  1. CLOMIPRAMINE [Concomitant]
     Active Substance: CLOMIPRAMINE
     Indication: ANXIETY
     Route: 048
     Dates: start: 2009
  2. OMEPRAZOLE. [Concomitant]
     Active Substance: OMEPRAZOLE
     Indication: PROPHYLAXIS
  3. PARACETAMOL [Concomitant]
     Active Substance: ACETAMINOPHEN
     Indication: PAIN
     Route: 048
  4. CIPROFLOXACIN. [Concomitant]
     Active Substance: CIPROFLOXACIN
     Indication: PRODUCT USED FOR UNKNOWN INDICATION
     Route: 042
  5. PREDNISONE. [Concomitant]
     Active Substance: PREDNISONE
     Indication: PRODUCT USED FOR UNKNOWN INDICATION
     Route: 048
  6. PROPRANOLOL [Concomitant]
     Active Substance: PROPRANOLOL\PROPRANOLOL HYDROCHLORIDE
     Indication: HYPERTENSION
     Route: 048
  7. QUETIAPIN [Concomitant]
     Active Substance: QUETIAPINE
     Indication: GENERALISED ANXIETY DISORDER
  8. CLONAZEPAM. [Concomitant]
     Active Substance: CLONAZEPAM
     Indication: PANIC DISORDER
  9. HUMIRA [Suspect]
     Active Substance: ADALIMUMAB
     Route: 058
     Dates: start: 2010, end: 2010
  10. OMEPRAZOLE. [Concomitant]
     Active Substance: OMEPRAZOLE
     Indication: GASTRIC DISORDER
     Route: 048
  11. ISONIAZID. [Suspect]
     Active Substance: ISONIAZID
     Indication: ANTIBIOTIC PROPHYLAXIS
     Dosage: FORM STRENGTH:  100MG / 3 TIMES EVERY 24 HOURS
     Route: 048
     Dates: start: 201006
  12. CLONAZEPAM. [Concomitant]
     Active Substance: CLONAZEPAM
     Indication: DEPRESSION
     Route: 048
  13. HUMIRA [Suspect]
     Active Substance: ADALIMUMAB
     Route: 058
     Dates: start: 20110214, end: 20110414
  14. HUMIRA [Suspect]
     Active Substance: ADALIMUMAB
     Route: 058
  15. AZATHIOPRINE. [Concomitant]
     Active Substance: AZATHIOPRINE
     Indication: CROHN^S DISEASE
     Route: 048
     Dates: start: 2006
  16. CITALOPRAM [Concomitant]
     Active Substance: CITALOPRAM HYDROBROMIDE
     Indication: PRODUCT USED FOR UNKNOWN INDICATION
     Route: 048
  17. SIMVASTATIN. [Concomitant]
     Active Substance: SIMVASTATIN
     Indication: BLOOD CHOLESTEROL ABNORMAL
     Route: 048
     Dates: start: 2015
  18. QUETIAPIN [Concomitant]
     Active Substance: QUETIAPINE
     Indication: DEPRESSION
     Route: 048
  19. HUMIRA [Suspect]
     Active Substance: ADALIMUMAB
     Indication: CROHN^S DISEASE
     Dosage: LOADING DOSE, WEEK 0
     Route: 058
     Dates: start: 20100601, end: 20100601
  20. HUMIRA [Suspect]
     Active Substance: ADALIMUMAB
     Dosage: LOADING DOSE, WEEK 1
     Route: 058
     Dates: start: 20100608, end: 20100608
  21. PROPRANOLOL [Concomitant]
     Active Substance: PROPRANOLOL\PROPRANOLOL HYDROCHLORIDE
     Indication: CARDIAC DISORDER
  22. CLONAZEPAM. [Concomitant]
     Active Substance: CLONAZEPAM
     Indication: GENERALISED ANXIETY DISORDER
  23. OMEPRAZOLE. [Concomitant]
     Active Substance: OMEPRAZOLE
     Indication: CROHN^S DISEASE
  24. QUETIAPIN [Concomitant]
     Active Substance: QUETIAPINE
     Indication: PANIC DISORDER

REACTIONS (23)
  - Gastrointestinal necrosis [Recovered/Resolved]
  - Depression [Recovered/Resolved]
  - Muscle spasms [Recovered/Resolved]
  - Abdominal pain [Not Recovered/Not Resolved]
  - Haematochezia [Recovering/Resolving]
  - Wound [Recovering/Resolving]
  - Fistula [Not Recovered/Not Resolved]
  - Weight decreased [Recovered/Resolved]
  - Pain [Not Recovered/Not Resolved]
  - Skin lesion [Not Recovered/Not Resolved]
  - Retching [Not Recovered/Not Resolved]
  - Back pain [Not Recovered/Not Resolved]
  - Influenza [Not Recovered/Not Resolved]
  - Constipation [Recovering/Resolving]
  - Crohn^s disease [Recovering/Resolving]
  - Arthralgia [Not Recovered/Not Resolved]
  - Blood cholesterol increased [Recovered/Resolved]
  - Skin haemorrhage [Recovering/Resolving]
  - Restlessness [Recovered/Resolved]
  - Diarrhoea [Recovering/Resolving]
  - Abdominal pain [Recovering/Resolving]
  - Emotional disorder [Unknown]
  - Pain in extremity [Recovered/Resolved]

NARRATIVE: CASE EVENT DATE: 201006
